FAERS Safety Report 7711122-1 (Version None)
Quarter: 2011Q3

REPORT INFORMATION
  Report Type: 
  Country: None (occurrence: None)
  Receive Date: 20110826
  Receipt Date: 20110818
  Transmission Date: 20111222
  Serious: No
  Sender: FDA-Public Use
  Company Number: US-BIOGENIDEC-2010BI009290

PATIENT
  Age: 60 Year
  Sex: Female

DRUGS (3)
  1. TYSABRI [Suspect]
     Route: 042
     Dates: start: 20080331
  2. TYSABRI [Suspect]
     Indication: MULTIPLE SCLEROSIS
     Route: 042
     Dates: start: 20050215, end: 20050215
  3. TYSABRI [Suspect]
     Route: 042
     Dates: start: 20070301, end: 20071226

REACTIONS (9)
  - TENDONITIS [None]
  - UPPER-AIRWAY COUGH SYNDROME [None]
  - NASOPHARYNGITIS [None]
  - FALL [None]
  - TOOTHACHE [None]
  - ARTHRITIS [None]
  - MUSCULAR WEAKNESS [None]
  - EXCORIATION [None]
  - MUSCULOSKELETAL CHEST PAIN [None]
